FAERS Safety Report 9771774 (Version 6)
Quarter: 2014Q2

REPORT INFORMATION
  Report Type: Report from Study
  Country: CO (occurrence: CO)
  Receive Date: 20131219
  Receipt Date: 20140405
  Transmission Date: 20141212
  Serious: Yes (Hospitalization, Other)
  Sender: FDA-Public Use
  Company Number: CO-ROCHE-1322072

PATIENT
  Age: 80 Year
  Sex: Male

DRUGS (4)
  1. RANIBIZUMAB [Suspect]
     Indication: PRODUCT USED FOR UNKNOWN INDICATION
     Dosage: STARTING DOSE: 10MCG/ML?MOST RECENT DOSE OF RANIBIZUMAB ON 04/APR/2013
     Route: 050
     Dates: start: 20121129
  2. RANIBIZUMAB [Suspect]
     Dosage: 10 MG/ML
     Route: 050
     Dates: start: 20130404
  3. AMLODIPINE [Concomitant]
     Route: 065
     Dates: start: 20021008
  4. ACETYLSALICYLIC ACID [Concomitant]
     Route: 065
     Dates: start: 20021008

REACTIONS (3)
  - Colon cancer [Recovering/Resolving]
  - Hyperglycaemia [Not Recovered/Not Resolved]
  - Benign prostatic hyperplasia [Recovering/Resolving]
